FAERS Safety Report 8457392-6 (Version None)
Quarter: 2012Q2

REPORT INFORMATION
  Report Type: 
  Country: None (occurrence: None)
  Receive Date: 20120621
  Receipt Date: 20111117
  Transmission Date: 20120825
  Serious: Yes (Hospitalization)
  Sender: FDA-Public Use
  Company Number: FR-ABBOTT-12P-056-0948182-00

PATIENT
  Age: 22 Year
  Sex: Female

DRUGS (8)
  1. FERROUS SULFATE TAB [Suspect]
     Indication: PRODUCT USED FOR UNKNOWN INDICATION
     Route: 065
  2. GENTAMICIN [Concomitant]
     Indication: PNEUMONIA
     Route: 065
     Dates: start: 20100912, end: 20100919
  3. FOLIC ACID [Suspect]
     Indication: PRODUCT USED FOR UNKNOWN INDICATION
     Route: 065
  4. SILVER SULFADIAZINE [Suspect]
     Indication: PRODUCT USED FOR UNKNOWN INDICATION
     Route: 065
     Dates: start: 20100901, end: 20101003
  5. ORBENIN CAP [Concomitant]
     Indication: PNEUMONIA
     Route: 065
     Dates: start: 20100912, end: 20100919
  6. KEPPRA [Suspect]
     Indication: PRODUCT USED FOR UNKNOWN INDICATION
     Route: 065
     Dates: start: 20100901, end: 20101003
  7. LOXAPINE HCL [Suspect]
     Indication: PRODUCT USED FOR UNKNOWN INDICATION
     Route: 048
     Dates: start: 20100901, end: 20101003
  8. EFFEXOR [Concomitant]
     Indication: DEPRESSION
     Route: 065

REACTIONS (9)
  - BLISTER [None]
  - TOXIC EPIDERMAL NECROLYSIS [None]
  - FACE OEDEMA [None]
  - CONJUNCTIVITIS [None]
  - SKIN EXFOLIATION [None]
  - SKIN LESION [None]
  - PRURITUS [None]
  - RASH MACULO-PAPULAR [None]
  - RASH ERYTHEMATOUS [None]
